FAERS Safety Report 7129709-6 (Version None)
Quarter: 2010Q4

REPORT INFORMATION
  Report Type: 
  Country: None (occurrence: None)
  Receive Date: 20101130
  Receipt Date: 20101123
  Transmission Date: 20110411
  Serious: Yes (Death)
  Sender: FDA-Public Use
  Company Number: VE-PFIZER INC-2010143265

PATIENT
  Age: 70 Year
  Sex: Female

DRUGS (5)
  1. ZOLOFT [Suspect]
     Indication: DEPRESSION
     Dosage: 50 MG, UNK
     Route: 048
  2. INSULIN [Concomitant]
     Dosage: UNK
     Route: 058
  3. HEPARIN [Concomitant]
     Dosage: UNK
  4. ERYTHROPOIETIN [Concomitant]
     Dosage: UNK
  5. DAFLON [Concomitant]
     Dosage: UNK
     Route: 048

REACTIONS (3)
  - RESPIRATORY ARREST [None]
  - SEPSIS [None]
  - VARICOSE ULCERATION [None]
